FAERS Safety Report 19276308 (Version 14)
Quarter: 2021Q4

REPORT INFORMATION
  Report Type: Report from Study
  Country: IT (occurrence: IT)
  Receive Date: 20210520
  Receipt Date: 20211228
  Transmission Date: 20220303
  Serious: Yes (Other)
  Sender: FDA-Public Use
  Company Number: IT-CELLTRION INC.-2021IT006701

PATIENT

DRUGS (53)
  1. TRASTUZUMAB [Suspect]
     Active Substance: TRASTUZUMAB
     Indication: HER2 positive breast cancer
     Dosage: 2 UG/KG EVERY 1 WEEK; DATE OF MOST RECENT DOSE RECEIVED PRIOR TO THE EVENT ONSET: 15/DEC/2020
     Route: 042
     Dates: start: 20201215, end: 20210107
  2. TRASTUZUMAB [Suspect]
     Active Substance: TRASTUZUMAB
     Indication: HER2 positive breast cancer
     Route: 065
  3. PACLITAXEL [Suspect]
     Active Substance: PACLITAXEL
     Indication: HER2 positive breast cancer
     Dosage: 130 MG, DATE OF MOST RECENT DOSE RECEIVED PRIOR TO THE EVENT ONSET: 17/JUN/2019
     Route: 042
     Dates: start: 20190314, end: 20190610
  4. PACLITAXEL [Suspect]
     Active Substance: PACLITAXEL
     Indication: HER2 positive breast cancer
     Dosage: 130 MG (UNIT=NOT AVAILABLE)
     Route: 065
     Dates: start: 20190314, end: 20190610
  5. PERTUZUMAB [Suspect]
     Active Substance: PERTUZUMAB
     Indication: HER2 positive breast cancer
     Dosage: 840 MG, EVERY 3 WEEKS; DATE OF MOST RECENT DOSE RECEIVED PRIOR TO THE EVENT ONSET: 08/APR/2019
     Route: 042
     Dates: start: 20190314, end: 20190314
  6. PERTUZUMAB [Suspect]
     Active Substance: PERTUZUMAB
     Indication: HER2 positive breast cancer
     Dosage: 840 MILLIGRAM, Q3WK (UNIT=NOT AVAILABLE)
     Route: 042
     Dates: start: 20190314, end: 20190314
  7. PERTUZUMAB [Suspect]
     Active Substance: PERTUZUMAB
     Dosage: 840 MILLIGRAM, Q3WK
     Route: 042
     Dates: start: 20190408
  8. ADO-TRASTUZUMAB EMTANSINE [Suspect]
     Active Substance: ADO-TRASTUZUMAB EMTANSINE
     Indication: HER2 positive breast cancer
     Dosage: 3.6 UG/KG, EVERY 3 WEEKS; DATE OF MOST RECENT DOSE RECEIVED PRIOR TO THE EVENT ONSET: 04/NOV/2020
     Route: 042
     Dates: start: 20200506, end: 20201104
  9. ADO-TRASTUZUMAB EMTANSINE [Suspect]
     Active Substance: ADO-TRASTUZUMAB EMTANSINE
     Dosage: 3.6 UG/KG
     Route: 042
     Dates: start: 20201215
  10. ADO-TRASTUZUMAB EMTANSINE [Suspect]
     Active Substance: ADO-TRASTUZUMAB EMTANSINE
     Dosage: 3.6 UG/KG EVERY 3 WEEKS (DATE OF MOST RECENT DOSE RECEIVED PRIOR TO THE EVENT ONSET: 04/NOV/2020)
     Route: 042
     Dates: start: 20200506
  11. ADO-TRASTUZUMAB EMTANSINE [Suspect]
     Active Substance: ADO-TRASTUZUMAB EMTANSINE
     Indication: HER2 positive breast cancer
     Dosage: 3.6 MICROGRAM/KILOGRAM, Q3WK (UNIT=NOT AVAILABLE)
     Route: 042
     Dates: start: 20200506, end: 20201104
  12. ADO-TRASTUZUMAB EMTANSINE [Suspect]
     Active Substance: ADO-TRASTUZUMAB EMTANSINE
     Dosage: 3.6 MICROGRAM/KILOGRAM, Q3WK (UNIT=NOT AVAILABLE)
     Route: 065
     Dates: start: 20200506, end: 20201104
  13. ADO-TRASTUZUMAB EMTANSINE [Suspect]
     Active Substance: ADO-TRASTUZUMAB EMTANSINE
     Dosage: 3.6 MICROGRAM/KILOGRAM, Q3WK
     Dates: start: 20201104
  14. ADO-TRASTUZUMAB EMTANSINE [Suspect]
     Active Substance: ADO-TRASTUZUMAB EMTANSINE
     Dosage: 3.6 MICROGRAM/KILOGRAM
     Dates: end: 20201215
  15. EXEMESTANE [Suspect]
     Active Substance: EXEMESTANE
     Indication: HER2 positive breast cancer
     Dosage: 25 MG, QD; DATE OF MOST RECENT DOSE OF EXEMESTANE RECEIVED PRIOR TO THE EVENT ONSET: 22/APR/2020
     Route: 048
     Dates: start: 20190819, end: 20200422
  16. EXEMESTANE [Suspect]
     Active Substance: EXEMESTANE
     Dosage: 25 MG, QD
     Route: 065
     Dates: start: 20190819, end: 20200422
  17. EXEMESTANE [Suspect]
     Active Substance: EXEMESTANE
     Dosage: 25 MG QD
     Dates: start: 20200422
  18. EXEMESTANE [Suspect]
     Active Substance: EXEMESTANE
     Indication: HER2 positive breast cancer
     Dosage: 25 MILLIGRAM, QD
     Route: 065
     Dates: start: 20190819, end: 20200422
  19. IVABRADINE [Suspect]
     Active Substance: IVABRADINE
     Indication: Product used for unknown indication
     Dosage: 130 MILLIGRAM (UNIT=NOT AVAILABLE)
     Route: 042
     Dates: start: 20190314, end: 20190610
  20. IVABRADINE [Suspect]
     Active Substance: IVABRADINE
     Dosage: UNK (UNIT=NOT AVAILABLE)
     Route: 065
     Dates: start: 20151118
  21. IVABRADINE [Suspect]
     Active Substance: IVABRADINE
     Dosage: UNK UNIT=NOT AVAILABLE
     Route: 042
     Dates: start: 20151118
  22. IVABRADINE [Suspect]
     Active Substance: IVABRADINE
     Dosage: 840 MILLIGRAM, Q3WK (UNIT=NOT AVAILABLE)
     Route: 042
     Dates: start: 20190314, end: 20190314
  23. IVABRADINE [Suspect]
     Active Substance: IVABRADINE
     Dosage: 3.6 MICROGRAM/KILOGRAM, Q3WK (UNIT=NOT AVAILABLE)
     Route: 048
     Dates: start: 20200506, end: 20201104
  24. IVABRADINE [Suspect]
     Active Substance: IVABRADINE
     Dosage: 3.6 MICROGRAM/KILOGRAM, Q3WK (UNIT=NOT AVAILABLE)
     Route: 042
     Dates: start: 20200506, end: 20201104
  25. IVABRADINE [Suspect]
     Active Substance: IVABRADINE
     Dosage: 25 MILLIGRAM, QD (UNIT=NOT AVAILABLE)
     Route: 048
     Dates: start: 20190819, end: 20200422
  26. IVABRADINE [Suspect]
     Active Substance: IVABRADINE
     Dosage: UNK MILLIGRAM/SQ. METER (UNIT=NOT AVAILABLE)
     Route: 042
     Dates: start: 20201215
  27. IVABRADINE [Suspect]
     Active Substance: IVABRADINE
     Dosage: 25 MILLIGRAM, QD UNIT=AVAILABLE
     Route: 042
     Dates: start: 20201215, end: 20210107
  28. VINORELBINE TARTRATE [Suspect]
     Active Substance: VINORELBINE TARTRATE
     Indication: HER2 positive breast cancer
     Dosage: UNK MILLIGRAM/SQ. METER (UNIT=NOT AVAILABLE)
     Route: 065
     Dates: start: 20201215
  29. VINORELBINE TARTRATE [Suspect]
     Active Substance: VINORELBINE TARTRATE
     Indication: HER2 positive breast cancer
     Dosage: UNK MILLIGRAM/SQ. METER
     Route: 065
     Dates: start: 20201215
  30. VINORELBINE [Suspect]
     Active Substance: VINORELBINE TARTRATE
     Indication: HER2 positive breast cancer
     Dosage: 25 MG/M2
     Route: 065
     Dates: start: 20201215
  31. IVABRADINE [Suspect]
     Active Substance: IVABRADINE
     Indication: Product used for unknown indication
     Dosage: 840 MILLIGRAM, Q3WK
     Route: 042
     Dates: start: 20190314, end: 20190314
  32. IVABRADINE [Suspect]
     Active Substance: IVABRADINE
     Dosage: 25 MILLIGRAM, QD
     Route: 048
     Dates: start: 20190819, end: 20200422
  33. IVABRADINE [Suspect]
     Active Substance: IVABRADINE
     Dosage: 130 MILLIGRAM
     Route: 042
     Dates: start: 20190314, end: 20190610
  34. IVABRADINE [Suspect]
     Active Substance: IVABRADINE
     Dosage: 25 MG, QD
     Route: 042
     Dates: start: 20201215, end: 20210107
  35. IVABRADINE [Suspect]
     Active Substance: IVABRADINE
     Dosage: 3.6 MICROGRAM/KILOGRAM, Q3WK
     Route: 042
     Dates: start: 20200506, end: 20201104
  36. IVABRADINE [Suspect]
     Active Substance: IVABRADINE
     Dosage: UNK
     Route: 042
     Dates: start: 20151118
  37. BISOPROLOL [Concomitant]
     Active Substance: BISOPROLOL
     Indication: Product used for unknown indication
     Dosage: UNK
     Route: 065
     Dates: start: 20151118
  38. BISOPROLOL [Concomitant]
     Active Substance: BISOPROLOL
     Dosage: UNK
     Dates: start: 20200709
  39. CHOLECALCIFEROL [Concomitant]
     Active Substance: CHOLECALCIFEROL
     Indication: Product used for unknown indication
     Dosage: UNK
     Route: 065
  40. QUETIAPINE [Concomitant]
     Active Substance: QUETIAPINE
     Indication: Product used for unknown indication
  41. IVABRADINE [Concomitant]
     Active Substance: IVABRADINE
     Dosage: UNK
     Dates: start: 20151118
  42. URSODIOL [Concomitant]
     Active Substance: URSODIOL
     Indication: Product used for unknown indication
     Dosage: UNK
     Dates: start: 20200709
  43. QUETIAPINE FUMARATE [Concomitant]
     Active Substance: QUETIAPINE FUMARATE
     Indication: Product used for unknown indication
     Dosage: UNK
  44. DEXAMETHASONE [Concomitant]
     Active Substance: DEXAMETHASONE
  45. CLARITHROMYCIN [Concomitant]
     Active Substance: CLARITHROMYCIN
  46. CYMBALTA [Concomitant]
     Active Substance: DULOXETINE HYDROCHLORIDE
  47. RANITIDINE [Concomitant]
     Active Substance: RANITIDINE
  48. HEPARIN SODIUM [Concomitant]
     Active Substance: HEPARIN SODIUM
  49. AMOXICILLIN [Concomitant]
     Active Substance: AMOXICILLIN
  50. ALIZAPRIDE [Concomitant]
     Active Substance: ALIZAPRIDE
  51. CHLORPHENIRAMINE MALEATE [Concomitant]
     Active Substance: CHLORPHENIRAMINE MALEATE
  52. HYDROCORTISONE [Concomitant]
     Active Substance: HYDROCORTISONE
  53. ONDANSETRON [Concomitant]
     Active Substance: ONDANSETRON

REACTIONS (3)
  - Neutropenia [Recovered/Resolved]
  - Off label use [Unknown]
  - Underdose [Unknown]

NARRATIVE: CASE EVENT DATE: 20190314
